FAERS Safety Report 6232024-6 (Version None)
Quarter: 2009Q2

REPORT INFORMATION
  Report Type: 
  Country: None (occurrence: None)
  Receive Date: 20090612
  Receipt Date: 20090531
  Transmission Date: 20091009
  Serious: Yes (Disabling)
  Sender: FDA-Public Use
  Company Number: GB-DEXPHARM-20090814

PATIENT
  Age: 76 Year
  Sex: Male

DRUGS (1)
  1. CORSODYL ACTIVE SUBSTANCES: CHLORHEXIDINE GLUCONATE [Suspect]
     Indication: DENTAL CARE

REACTIONS (3)
  - DYSPNOEA [None]
  - OEDEMA PERIPHERAL [None]
  - STEVENS-JOHNSON SYNDROME [None]
